FAERS Safety Report 18713508 (Version 1)
Quarter: 2021Q1

REPORT INFORMATION
  Report Type: Spontaneous
  Country: US (occurrence: US)
  Receive Date: 20210107
  Receipt Date: 20210107
  Transmission Date: 20210419
  Serious: Yes (Other)
  Sender: FDA-Public Use
  Company Number: US-SA-2020SA377169

PATIENT

DRUGS (1)
  1. ENOXAPARIN SODIUM. [Suspect]
     Active Substance: ENOXAPARIN SODIUM
     Indication: ANTICOAGULANT THERAPY
     Dosage: UNK UNK, 1X
     Route: 058

REACTIONS (9)
  - Anuria [Recovering/Resolving]
  - Haematocrit decreased [Recovering/Resolving]
  - Blood creatinine decreased [Unknown]
  - Abdominal distension [Recovering/Resolving]
  - Acute kidney injury [Unknown]
  - Hydronephrosis [Unknown]
  - Pelvic haematoma [Recovering/Resolving]
  - Abdominal pain lower [Recovering/Resolving]
  - Abdominal tenderness [Recovering/Resolving]
